FAERS Safety Report 8478444-0 (Version None)
Quarter: 2012Q2

REPORT INFORMATION
  Report Type: 
  Country: None (occurrence: None)
  Receive Date: 20120629
  Receipt Date: 20120620
  Transmission Date: 20120825
  Serious: Yes (Hospitalization)
  Sender: FDA-Public Use
  Company Number: CA-JNJFOC-20120610109

PATIENT
  Sex: Female

DRUGS (7)
  1. VITAMIN B-12 [Concomitant]
     Route: 065
  2. EFFEXOR [Concomitant]
     Dosage: 75 (UNITS NOT SPECIFIED)
     Route: 065
  3. PURINETHOL [Concomitant]
     Route: 065
  4. SYNTHROID [Concomitant]
     Route: 065
  5. CALCIUM AND VITAMIN D [Concomitant]
     Dosage: D1 TABLET QD
     Route: 065
  6. REMICADE [Suspect]
     Indication: CROHN'S DISEASE
     Dosage: 300 MG FOR INDUCTION X 3 DOSES
     Route: 042
     Dates: start: 20120315, end: 20120424
  7. ESTROGENS [Concomitant]
     Route: 065

REACTIONS (1)
  - INTESTINAL STENOSIS [None]
